FAERS Safety Report 8274145-2 (Version None)
Quarter: 2012Q2

REPORT INFORMATION
  Report Type: 
  Country: None (occurrence: None)
  Receive Date: 20120411
  Receipt Date: 20120409
  Transmission Date: 20120825
  Serious: Yes (Other)
  Sender: FDA-Public Use
  Company Number: US-PFIZER INC-2012088268

PATIENT
  Sex: Male
  Weight: 84 kg

DRUGS (11)
  1. NITROSTAT [Suspect]
     Indication: VASCULAR GRAFT
  2. PRAVASTATIN [Concomitant]
     Indication: BLOOD CHOLESTEROL ABNORMAL
     Dosage: 40 MG, DAILY
  3. LANTUS [Concomitant]
     Indication: DIABETES MELLITUS
     Dosage: 40 IU, 2X/DAY
  4. PLAVIX [Concomitant]
     Indication: ANTICOAGULANT THERAPY
     Dosage: 75 MG, DAILY
  5. ZETIA [Concomitant]
     Indication: BLOOD CHOLESTEROL ABNORMAL
     Dosage: 10 MG, DAILY
  6. ZOLPIDEM [Concomitant]
     Indication: SLEEP DISORDER
     Dosage: 10 MG, DAILY
  7. IPRATROPIUM BROMIDE [Concomitant]
     Indication: CHRONIC OBSTRUCTIVE PULMONARY DISEASE
     Dosage: UNK
  8. METOPROLOL [Concomitant]
     Indication: BLOOD PRESSURE ABNORMAL
     Dosage: 50 MG, 2X/DAY
  9. NITROSTAT [Suspect]
     Indication: MYOCARDIAL INFARCTION
     Dosage: 0.4 MG, UNK
     Dates: start: 19970101
  10. ALBUTEROL SULFATE [Concomitant]
     Indication: CHRONIC OBSTRUCTIVE PULMONARY DISEASE
     Dosage: 3 MG, 4X/DAY
  11. NAPROXEN [Concomitant]
     Indication: ARTHRITIS
     Dosage: 500 MG, 2X/DAY

REACTIONS (9)
  - LUNG NEOPLASM MALIGNANT [None]
  - PAIN [None]
  - NAUSEA [None]
  - DYSPHAGIA [None]
  - GASTROOESOPHAGEAL REFLUX DISEASE [None]
  - STOMATITIS [None]
  - BLOOD SODIUM ABNORMAL [None]
  - EATING DISORDER [None]
  - OESOPHAGEAL CANDIDIASIS [None]
